APPROVED DRUG PRODUCT: GRALISE
Active Ingredient: GABAPENTIN
Strength: 600MG
Dosage Form/Route: TABLET;ORAL
Application: N022544 | Product #002 | TE Code: AB2
Applicant: ALMATICA PHARMA INC
Approved: Jan 28, 2011 | RLD: Yes | RS: No | Type: RX